FAERS Safety Report 9857822 (Version 2)
Quarter: 2014Q1

REPORT INFORMATION
  Report Type: Spontaneous
  Country: DE (occurrence: DE)
  Receive Date: 20140131
  Receipt Date: 20140131
  Transmission Date: 20141002
  Serious: Yes (Other)
  Sender: FDA-Public Use
  Company Number: DE-BRISTOL-MYERS SQUIBB COMPANY-19816974

PATIENT
  Age: 47 Year
  Sex: Male
  Weight: 88 kg

DRUGS (12)
  1. COUMADIN TABS [Suspect]
     Indication: INJURY
     Dosage: 1DF- 1 TO 2 TABS
     Route: 048
     Dates: start: 199212
  2. COUMADIN TABS [Suspect]
     Indication: COR PULMONALE
     Dosage: 1DF- 1 TO 2 TABS
     Route: 048
     Dates: start: 199212
  3. COUMADIN TABS [Suspect]
     Indication: PULMONARY EMBOLISM
     Dosage: 1DF- 1 TO 2 TABS
     Route: 048
     Dates: start: 199212
  4. COUMADIN TABS [Suspect]
     Indication: CARDIAC OPERATION
     Dosage: 1DF- 1 TO 2 TABS
     Route: 048
     Dates: start: 199212
  5. DECORTIN [Concomitant]
  6. CANDESARTAN [Concomitant]
  7. ALLOPURINOL [Concomitant]
  8. BISOPROLOL [Concomitant]
  9. PANTOPRAZOLE [Concomitant]
  10. FUROSEMIDE [Concomitant]
  11. CALCIVIT [Concomitant]
  12. TILIDINE [Concomitant]
     Dosage: TILDINE 100/8MG,1DF-1/2 TAB

REACTIONS (2)
  - Diarrhoea haemorrhagic [Not Recovered/Not Resolved]
  - Change of bowel habit [Not Recovered/Not Resolved]
